FAERS Safety Report 12540601 (Version 1)
Quarter: 2016Q3

REPORT INFORMATION
  Report Type: Spontaneous
  Country: US (occurrence: US)
  Receive Date: 20160708
  Receipt Date: 20160708
  Transmission Date: 20161109
  Serious: No
  Sender: FDA-Public Use
  Company Number: US-TEVA-651778USA

PATIENT
  Age: 46 Year
  Sex: Female

DRUGS (1)
  1. ZECUITY [Suspect]
     Active Substance: SUMATRIPTAN SUCCINATE
     Route: 062
     Dates: start: 20160406

REACTIONS (5)
  - Application site bruise [Recovering/Resolving]
  - Drug ineffective [Unknown]
  - Product adhesion issue [Unknown]
  - Application site discolouration [Recovering/Resolving]
  - Application site reaction [Recovered/Resolved]

NARRATIVE: CASE EVENT DATE: 20160406
